FAERS Safety Report 7779212-5 (Version None)
Quarter: 2011Q3

REPORT INFORMATION
  Report Type: 
  Country: None (occurrence: None)
  Receive Date: 20110926
  Receipt Date: 20110902
  Transmission Date: 20111222
  Serious: No
  Sender: FDA-Public Use
  Company Number: US-ROXANE LABORATORIES, INC.-2011-RO-01147RO

PATIENT
  Sex: Male

DRUGS (3)
  1. AMLODIPINE [Concomitant]
     Dosage: 5 MG
  2. TAMSULOSIN HCL [Concomitant]
     Indication: PROSTATIC DISORDER
  3. RAMIPRIL [Suspect]
     Indication: HYPERTENSION
     Dosage: 20 MG
     Route: 048
     Dates: end: 20110816

REACTIONS (1)
  - DRUG INEFFECTIVE [None]
